FAERS Safety Report 5739041-0 (Version None)
Quarter: 2008Q2

REPORT INFORMATION
  Report Type: 
  Country: None (occurrence: None)
  Receive Date: 20080515
  Receipt Date: 20080515
  Transmission Date: 20081010
  Serious: Yes (Hospitalization)
  Sender: FDA-Public Use
  Company Number: None

PATIENT
  Age: 67 Year
  Sex: Female
  Weight: 106 kg

DRUGS (3)
  1. HEPARIN [Suspect]
     Indication: CORONARY ARTERY BYPASS
     Dosage: 32,000 UNITS X 1 DOSE  IV
     Route: 042
     Dates: start: 20080408
  2. HEPARIN [Suspect]
     Indication: AORTIC VALVE REPLACEMENT
     Dosage: 20,000 UNITS X 3 DOSES  IV
     Route: 042
     Dates: start: 20080408
  3. DESMOPRESSIN ACETATE [Concomitant]

REACTIONS (1)
  - DRUG EFFECT DECREASED [None]
